FAERS Safety Report 12736072 (Version 1)
Quarter: 2016Q3

REPORT INFORMATION
  Report Type: Spontaneous
  Country: IT (occurrence: IT)
  Receive Date: 20160912
  Receipt Date: 20160912
  Transmission Date: 20161109
  Serious: Yes (Other)
  Sender: FDA-Public Use
  Company Number: IT-PFIZER INC-2016420264

PATIENT
  Age: 90 Year
  Sex: Female

DRUGS (6)
  1. DEPALGOS [Suspect]
     Active Substance: ACETAMINOPHEN\OXYCODONE HYDROCHLORIDE
     Indication: ANXIOLYTIC THERAPY
     Dosage: 20 MG, 1X/DAY
     Route: 048
  2. TAVOR (LORAZEPAM) [Suspect]
     Active Substance: LORAZEPAM
     Indication: ANXIOLYTIC THERAPY
     Dosage: 2 MG, 1X/DAY
     Route: 048
     Dates: start: 20150101, end: 20160125
  3. SEREUPIN [Concomitant]
     Active Substance: PAROXETINE HYDROCHLORIDE
     Dosage: 1 DF, UNK
  4. LYRICA [Suspect]
     Active Substance: PREGABALIN
     Indication: ANXIOLYTIC THERAPY
     Dosage: 150 MG, 1X/DAY
     Route: 048
     Dates: start: 20150101, end: 20160125
  5. LASITONE [Concomitant]
     Active Substance: FUROSEMIDE\SPIRONOLACTONE
  6. HALCION [Concomitant]
     Active Substance: TRIAZOLAM

REACTIONS (5)
  - Loss of consciousness [Recovering/Resolving]
  - Overdose [Recovering/Resolving]
  - Confusional state [Recovering/Resolving]
  - Disease progression [Recovering/Resolving]
  - Cognitive disorder [Recovering/Resolving]

NARRATIVE: CASE EVENT DATE: 20160125
